FAERS Safety Report 22076032 (Version 2)
Quarter: 2023Q1

REPORT INFORMATION
  Report Type: Spontaneous
  Country: CN (occurrence: CN)
  Receive Date: 20230308
  Receipt Date: 20230313
  Transmission Date: 20230418
  Serious: Yes (Other)
  Sender: FDA-Public Use
  Company Number: None

PATIENT
  Age: 51 Year
  Sex: Female
  Weight: 45.1 kg

DRUGS (5)
  1. CYCLOPHOSPHAMIDE [Suspect]
     Active Substance: CYCLOPHOSPHAMIDE
     Indication: Breast cancer female
     Dosage: 0.85 G, QD, DILUTED WITH 250 ML OF SODIUM CHLORIDE, AS PART OF FOURTH ADJUVANT CHEMOTHERAPY
     Route: 041
     Dates: start: 20221028, end: 20221028
  2. CYCLOPHOSPHAMIDE [Suspect]
     Active Substance: CYCLOPHOSPHAMIDE
     Indication: Neoplasm
  3. SODIUM CHLORIDE [Suspect]
     Active Substance: SODIUM CHLORIDE
     Indication: Medication dilution
     Dosage: 250 ML, QD, USED TO DILUTE 0.85 G OF CYCLOPHOSPHAMIDE, AS PART OF FOURTH ADJUVANT CHEMOTHERAPY
     Route: 041
     Dates: start: 20221028, end: 20221028
  4. DOXORUBICIN HYDROCHLORIDE [Suspect]
     Active Substance: DOXORUBICIN HYDROCHLORIDE
     Indication: Breast cancer female
     Dosage: 50 MG, QD, DILUTED WITH 250 ML OF GLUCOSE, AS PART OF FOURTH ADJUVANT CHEMOTHERAPY
     Route: 041
     Dates: start: 20221028, end: 20221028
  5. DEXTROSE [Suspect]
     Active Substance: DEXTROSE
     Indication: Medication dilution
     Dosage: 250 ML, QD, USED TO DILUTE 50 MG DOXORUBICIN LIPOSOME, AS PART OF FOURTH ADJUVANT CHEMOTHERAPY
     Route: 041
     Dates: start: 20221028, end: 20221028

REACTIONS (1)
  - Myelosuppression [Recovered/Resolved]

NARRATIVE: CASE EVENT DATE: 20221105
